FAERS Safety Report 12175557 (Version 3)
Quarter: 2020Q3

REPORT INFORMATION
  Report Type: Report from Study
  Country: JP (occurrence: JP)
  Receive Date: 20160314
  Receipt Date: 20170306
  Transmission Date: 20201105
  Serious: Yes (Hospitalization)
  Sender: FDA-Public Use
  Company Number: JP-JNJFOC-20160212135

PATIENT
  Age: 62 Year
  Sex: Female
  Weight: 69.5 kg

DRUGS (32)
  1. IBRUTINIB [Suspect]
     Active Substance: IBRUTINIB
     Indication: NON-HODGKIN^S LYMPHOMA
     Dosage: MEDICAL KIT NUMBER: 52071
     Route: 048
     Dates: start: 20160105, end: 20160203
  2. BROTIZOLAM [Concomitant]
     Active Substance: BROTIZOLAM
     Indication: INSOMNIA
     Route: 048
     Dates: start: 20151013
  3. ACICLOVIR [Concomitant]
     Active Substance: ACYCLOVIR
     Indication: INFECTION PROPHYLAXIS
     Route: 048
     Dates: start: 20151006
  4. SODIUM GUALENATE [Concomitant]
     Active Substance: SODIUM GUALENATE
     Indication: CHEILITIS
     Dosage: DOSE: 20
     Route: 062
     Dates: start: 20151022
  5. VALACYCLOVIR [Concomitant]
     Active Substance: VALACYCLOVIR HYDROCHLORIDE
     Indication: INFECTION PROPHYLAXIS
     Route: 048
     Dates: start: 20160223
  6. BENDAMUSTINE [Suspect]
     Active Substance: BENDAMUSTINE
     Indication: NON-HODGKIN^S LYMPHOMA
     Dosage: AMOUNT ADMINISTERED: 153
     Route: 042
     Dates: start: 20151007, end: 20151007
  7. RITUXIMAB. [Suspect]
     Active Substance: RITUXIMAB
     Indication: NON-HODGKIN^S LYMPHOMA
     Dosage: AMOUNT ADMINISTERED: 637.5
     Route: 042
     Dates: start: 20160104, end: 20160104
  8. SODIUM GUALENATE [Concomitant]
     Active Substance: SODIUM GUALENATE
     Indication: CHEILITIS
     Dosage: DOSE: 20
     Route: 062
     Dates: start: 20151022
  9. IBRUTINIB [Suspect]
     Active Substance: IBRUTINIB
     Indication: NON-HODGKIN^S LYMPHOMA
     Dosage: MEDICAL KIT NUMBER: 56167
     Route: 048
     Dates: start: 20151105, end: 20151203
  10. RITUXIMAB. [Suspect]
     Active Substance: RITUXIMAB
     Indication: NON-HODGKIN^S LYMPHOMA
     Dosage: AMOUNT ADMINISTERED: 637.5
     Route: 042
     Dates: start: 20151104, end: 20151104
  11. BENDAMUSTINE [Suspect]
     Active Substance: BENDAMUSTINE
     Indication: NON-HODGKIN^S LYMPHOMA
     Dosage: AMOUNT ADMINISTERED: 153
     Route: 042
     Dates: start: 20160203, end: 20160203
  12. BENDAMUSTINE [Suspect]
     Active Substance: BENDAMUSTINE
     Indication: NON-HODGKIN^S LYMPHOMA
     Dosage: AMOUNT ADMINISTERED: 153
     Route: 042
     Dates: start: 20151204, end: 20151204
  13. BENDAMUSTINE [Suspect]
     Active Substance: BENDAMUSTINE
     Indication: NON-HODGKIN^S LYMPHOMA
     Dosage: AMOUNT ADMINISTERED: 153
     Route: 042
     Dates: start: 20151203, end: 20151203
  14. RITUXIMAB. [Suspect]
     Active Substance: RITUXIMAB
     Indication: NON-HODGKIN^S LYMPHOMA
     Dosage: AMOUNT ADMINISTERED: 637.5??CYCLE 5 STOPPED ON 3?FEB?2016
     Route: 042
     Dates: start: 20160203
  15. DIPHENHYDRAMINE HYDROCHLORIDE. [Concomitant]
     Active Substance: DIPHENHYDRAMINE HYDROCHLORIDE
     Indication: RASH MACULO-PAPULAR
     Route: 062
     Dates: start: 20151021
  16. HIRUDOID [Concomitant]
     Active Substance: GLYCOSAMINOGLYCANS
     Indication: DRY SKIN
     Dosage: 50, PRN
     Route: 062
     Dates: start: 20151013
  17. IBRUTINIB [Suspect]
     Active Substance: IBRUTINIB
     Indication: NON-HODGKIN^S LYMPHOMA
     Dosage: MEDICAL KIT NUMBER: 53309
     Route: 048
     Dates: start: 20160204, end: 20160208
  18. IBRUTINIB [Suspect]
     Active Substance: IBRUTINIB
     Indication: NON-HODGKIN^S LYMPHOMA
     Dosage: MEDICAL KIT NUMBER: 58548, 58046
     Route: 048
     Dates: start: 20151206, end: 20160104
  19. BENDAMUSTINE [Suspect]
     Active Substance: BENDAMUSTINE
     Indication: NON-HODGKIN^S LYMPHOMA
     Dosage: AMOUNT ADMINISTERED: 153
     Route: 042
     Dates: start: 20151105, end: 20151105
  20. RITUXIMAB. [Suspect]
     Active Substance: RITUXIMAB
     Indication: NON-HODGKIN^S LYMPHOMA
     Dosage: AMOUNT ADMINISTERED: 637
     Route: 042
     Dates: start: 20151007, end: 20151007
  21. BENDAMUSTINE [Suspect]
     Active Substance: BENDAMUSTINE
     Indication: NON-HODGKIN^S LYMPHOMA
     Dosage: AMOUNT ADMINISTERED: 153
     Route: 042
     Dates: start: 20160105, end: 20160105
  22. BENDAMUSTINE [Suspect]
     Active Substance: BENDAMUSTINE
     Indication: NON-HODGKIN^S LYMPHOMA
     Dosage: AMOUNT ADMINISTERED: 153
     Route: 042
     Dates: start: 20150104, end: 20160105
  23. BENDAMUSTINE [Suspect]
     Active Substance: BENDAMUSTINE
     Indication: NON-HODGKIN^S LYMPHOMA
     Dosage: AMOUNT ADMINISTERED: 153
     Route: 042
     Dates: start: 20151008, end: 20151008
  24. SENNOSIDE [Concomitant]
     Active Substance: SENNOSIDES
     Indication: CONSTIPATION
     Route: 048
     Dates: start: 20151009
  25. BETAMETHASONE W/DEXCHLORPHENIRAMINE [Concomitant]
     Indication: PROPHYLAXIS
     Dosage: 2/0.25 MG
     Route: 048
     Dates: start: 20151106
  26. UREPEARL [Concomitant]
     Active Substance: UREA
     Indication: DRY SKIN
     Route: 061
     Dates: start: 20160106
  27. IBRUTINIB [Suspect]
     Active Substance: IBRUTINIB
     Indication: NON-HODGKIN^S LYMPHOMA
     Dosage: MEDICAL KIT NUMBER: 54930
     Route: 048
     Dates: start: 20151007, end: 20151104
  28. BENDAMUSTINE [Suspect]
     Active Substance: BENDAMUSTINE
     Indication: NON-HODGKIN^S LYMPHOMA
     Dosage: AMOUNT ADMINISTERED: 153
     Route: 042
     Dates: start: 20160204, end: 20160204
  29. BENDAMUSTINE [Suspect]
     Active Substance: BENDAMUSTINE
     Indication: NON-HODGKIN^S LYMPHOMA
     Dosage: AMOUNT ADMINISTERED: 153
     Route: 042
     Dates: start: 20151104, end: 20151104
  30. RITUXIMAB. [Suspect]
     Active Substance: RITUXIMAB
     Indication: NON-HODGKIN^S LYMPHOMA
     Dosage: AMOUNT ADMINISTERED: 637.5
     Route: 042
     Dates: start: 20151203, end: 20151203
  31. MAGNESIUM OXIDE. [Concomitant]
     Active Substance: MAGNESIUM OXIDE
     Indication: CONSTIPATION
     Route: 048
     Dates: start: 20151009
  32. KENALOG [Concomitant]
     Active Substance: TRIAMCINOLONE ACETONIDE
     Indication: CHEILITIS
     Dosage: DOSE: 5
     Route: 062
     Dates: start: 20151022

REACTIONS (1)
  - Interstitial lung disease [Recovering/Resolving]

NARRATIVE: CASE EVENT DATE: 20160208
